FAERS Safety Report 7934025-6 (Version None)
Quarter: 2011Q4

REPORT INFORMATION
  Report Type: 
  Country: None (occurrence: None)
  Receive Date: 20111122
  Receipt Date: 20111114
  Transmission Date: 20120403
  Serious: Yes (Other)
  Sender: FDA-Public Use
  Company Number: CA-ELI_LILLY_AND_COMPANY-CA201111004220

PATIENT
  Sex: Female

DRUGS (9)
  1. ZYPREXA [Suspect]
     Dosage: 5 MG, EACH EVENING
     Dates: end: 20090801
  2. ZYPREXA [Suspect]
     Dosage: 7.5 MG, QD
  3. ATIVAN [Concomitant]
  4. ATENOLOL [Concomitant]
  5. ZYPREXA [Suspect]
     Indication: BORDERLINE PERSONALITY DISORDER
     Dosage: 10 MG, EACH EVENING
     Dates: start: 20080727
  6. QUINAPRIL [Concomitant]
  7. GABAPENTIN [Concomitant]
  8. OXAZEPAM [Concomitant]
  9. ASPIRIN [Concomitant]

REACTIONS (14)
  - CEREBROVASCULAR ACCIDENT [None]
  - PARAESTHESIA [None]
  - TRANSIENT ISCHAEMIC ATTACK [None]
  - DIABETIC COMA [None]
  - OEDEMA PERIPHERAL [None]
  - DIABETES MELLITUS [None]
  - URINARY TRACT INFECTION [None]
  - RASH [None]
  - OFF LABEL USE [None]
  - DEPRESSED LEVEL OF CONSCIOUSNESS [None]
  - DECUBITUS ULCER [None]
  - ALTERED STATE OF CONSCIOUSNESS [None]
  - CHEST PAIN [None]
  - HYPERGLYCAEMIA [None]
